FAERS Safety Report 6567438-8 (Version None)
Quarter: 2010Q1

REPORT INFORMATION
  Report Type: 
  Country: None (occurrence: None)
  Receive Date: 20100128
  Receipt Date: 20100113
  Transmission Date: 20100710
  Serious: Yes (Hospitalization, Other)
  Sender: FDA-Public Use
  Company Number: 2009AC000361

PATIENT
  Age: 75 Year
  Sex: Female

DRUGS (63)
  1. DIGOXIN [Suspect]
     Dosage: 250 MCG;PO
     Route: 048
     Dates: start: 20080124
  2. DIGOXIN [Suspect]
     Dosage: 125 MCG;PO
     Route: 048
     Dates: start: 20080204
  3. CIPRO [Concomitant]
  4. DARVOCET [Concomitant]
  5. ASPIRIN [Concomitant]
  6. LOPRESSOR [Concomitant]
  7. COUMADIN [Concomitant]
  8. NYSTATIN [Concomitant]
  9. PRILOSEC [Concomitant]
  10. LIPITOR [Concomitant]
  11. REGLAN [Concomitant]
  12. SYNTHROID [Concomitant]
  13. CELEXA [Concomitant]
  14. MIRALAX [Concomitant]
  15. CLARITIN [Concomitant]
  16. MUCINEX [Concomitant]
  17. VALIUM [Concomitant]
  18. LORTAB [Concomitant]
  19. LIPITOR [Concomitant]
  20. NEXIUM [Concomitant]
  21. CORDARONE [Concomitant]
  22. BACTRIM [Concomitant]
  23. DIAZEPAM [Concomitant]
  24. DETROL [Concomitant]
  25. DILTIAZEM HCL [Concomitant]
  26. ACETAMINOPHEN [Concomitant]
  27. HYDROCODONE [Concomitant]
  28. ZINC [Concomitant]
  29. ASCORBIC ACID [Concomitant]
  30. OYST-CAL [Concomitant]
  31. LEVOTHYROXINE SODIUM [Concomitant]
  32. CEPHALEXIN [Concomitant]
  33. LEVAQUIN [Concomitant]
  34. PROMETHAZINE [Concomitant]
  35. NITROFURATOIN [Concomitant]
  36. SENNA-LAX [Concomitant]
  37. MULTI-VITAMINS [Concomitant]
  38. ZOSYN [Concomitant]
  39. POTASSIUM [Concomitant]
  40. DUONEB [Concomitant]
  41. MAGNESIUM [Concomitant]
  42. LISINOPRIL [Concomitant]
  43. PROPOXY-N [Concomitant]
  44. DICLOXACILLIN [Concomitant]
  45. LACTULOSE [Concomitant]
  46. METOCLOPRAMIDE [Concomitant]
  47. SERTRALINE HCL [Concomitant]
  48. NITROGLYCERIN [Concomitant]
  49. ALMACONE [Concomitant]
  50. LOPERAMIDE [Concomitant]
  51. NAPROXEN [Concomitant]
  52. JANTOVEN [Concomitant]
  53. AMIODARONE HCL [Concomitant]
  54. ASPIRIN [Concomitant]
  55. PANTOPRAZOLE [Concomitant]
  56. DOCUSATE [Concomitant]
  57. ONDANSETRON [Concomitant]
  58. FUROSEMIDE [Concomitant]
  59. RISPERDAL [Concomitant]
  60. LEVAQUIN [Concomitant]
  61. PACERONE [Concomitant]
  62. PROTONIX [Concomitant]
  63. LORCET-HD [Concomitant]

REACTIONS (31)
  - ACUTE MYOCARDIAL INFARCTION [None]
  - ANAEMIA [None]
  - ANXIETY [None]
  - ARRHYTHMIA [None]
  - ATRIOVENTRICULAR BLOCK COMPLETE [None]
  - BLEPHARITIS [None]
  - BRADYCARDIA [None]
  - CARDIAC ARREST [None]
  - CONDUCTION DISORDER [None]
  - CONJUNCTIVITIS [None]
  - CONSTIPATION [None]
  - DISCOMFORT [None]
  - EMOTIONAL DISTRESS [None]
  - FEAR [None]
  - FEMUR FRACTURE [None]
  - GASTRITIS [None]
  - HYPOTHYROIDISM [None]
  - INJURY [None]
  - JOINT DISLOCATION [None]
  - KYPHOSIS [None]
  - LOWER GASTROINTESTINAL HAEMORRHAGE [None]
  - MENTAL DISORDER [None]
  - MENTAL STATUS CHANGES [None]
  - MUSCULAR WEAKNESS [None]
  - OESOPHAGEAL CANDIDIASIS [None]
  - OSTEOPOROSIS [None]
  - PAIN [None]
  - PAIN IN EXTREMITY [None]
  - RECTAL HAEMORRHAGE [None]
  - THERAPEUTIC AGENT TOXICITY [None]
  - URINARY INCONTINENCE [None]
